FAERS Safety Report 21927923 (Version 2)
Quarter: 2023Q1

REPORT INFORMATION
  Report Type: Spontaneous
  Country: DE (occurrence: DE)
  Receive Date: 20230130
  Receipt Date: 20230309
  Transmission Date: 20230417
  Serious: Yes (Hospitalization)
  Sender: FDA-Public Use
  Company Number: DE-BAYER-2023A008318

PATIENT
  Age: 37 Year
  Sex: Female

DRUGS (3)
  1. BILTRICIDE [Suspect]
     Active Substance: PRAZIQUANTEL
     Indication: Infection parasitic
     Dosage: 1 DF, ONCE
     Dates: start: 20221201, end: 20221201
  2. HERBALS [Concomitant]
     Active Substance: HERBALS
  3. LEVOTHYROXINE SODIUM [Concomitant]
     Active Substance: LEVOTHYROXINE SODIUM

REACTIONS (5)
  - Hyponatraemia [Not Recovered/Not Resolved]
  - Weight decreased [Not Recovered/Not Resolved]
  - Nausea [Not Recovered/Not Resolved]
  - General physical health deterioration [Not Recovered/Not Resolved]
  - Asthenia [Not Recovered/Not Resolved]

NARRATIVE: CASE EVENT DATE: 20221201
